FAERS Safety Report 20191731 (Version 1)
Quarter: 2021Q4

REPORT INFORMATION
  Report Type: Spontaneous
  Country: US (occurrence: US)
  Receive Date: 20211216
  Receipt Date: 20211216
  Transmission Date: 20220303
  Serious: Yes (Other)
  Sender: FDA-Public Use
  Company Number: US-SUN PHARMACEUTICAL INDUSTRIES LTD-2021R1-320491

PATIENT
  Age: 77 Year
  Sex: Female

DRUGS (2)
  1. OXYCODONE [Suspect]
     Active Substance: OXYCODONE
     Indication: Bowel movement irregularity
     Dosage: UNK, QD (35 TO 65 MG)
     Route: 065
  2. OXYCODONE [Suspect]
     Active Substance: OXYCODONE
     Dosage: 22.5 MILLIGRAM, QD
     Route: 065

REACTIONS (3)
  - Sepsis [Unknown]
  - Symptom masked [Unknown]
  - Clostridium difficile colitis [Unknown]
